FAERS Safety Report 9722439 (Version 2)
Quarter: 2013Q4

REPORT INFORMATION
  Report Type: Report from Study
  Country: IL (occurrence: IL)
  Receive Date: 20131202
  Receipt Date: 20131212
  Transmission Date: 20140711
  Serious: Yes (Hospitalization, Other)
  Sender: FDA-Public Use
  Company Number: PHHY2013IL137425

PATIENT
  Age: 44 Year
  Sex: Female

DRUGS (2)
  1. SANDOSTATIN LAR [Suspect]
     Indication: CARCINOID TUMOUR
     Dosage: 30 MG, (Q4W)
     Dates: start: 20130612
  2. SANDOSTATIN LAR [Suspect]
     Dosage: 30 MG, (Q4W)
     Dates: start: 20131105

REACTIONS (1)
  - Breast cancer [Unknown]
